FAERS Safety Report 15346652 (Version 2)
Quarter: 2018Q3

REPORT INFORMATION
  Report Type: Spontaneous
  Country: US (occurrence: US)
  Receive Date: 20180904
  Receipt Date: 20180919
  Transmission Date: 20181010
  Serious: No
  Sender: FDA-Public Use
  Company Number: US-B.I. PHARMACEUTICALS,INC./RIDGEFIELD-2018-BI-041936

PATIENT
  Sex: Female

DRUGS (3)
  1. GILOTRIF [Suspect]
     Active Substance: AFATINIB
     Indication: MALIGNANT LYMPHOID NEOPLASM
     Dosage: FORM STRENGTH: 40 MG;  ACTION(S) TAKEN WITH PRODUCT: DRUG REDUCED
     Route: 065
     Dates: end: 201808
  2. GILOTRIF [Suspect]
     Active Substance: AFATINIB
     Indication: METASTASES TO SKIN
  3. GILOTRIF [Suspect]
     Active Substance: AFATINIB
     Indication: HEAD AND NECK CANCER
     Dosage: FORM STRENGTH: 30MG;? ?ACTION(S) TAKEN WITH PRODUCT: NOT REPORTED
     Route: 065
     Dates: start: 201808

REACTIONS (3)
  - Off label use [Unknown]
  - Diarrhoea [Unknown]
  - Nausea [Unknown]
